FAERS Safety Report 7919349-0 (Version None)
Quarter: 2011Q4

REPORT INFORMATION
  Report Type: 
  Country: None (occurrence: None)
  Receive Date: 20111117
  Receipt Date: 20111108
  Transmission Date: 20120403
  Serious: Yes (Disabling, Other)
  Sender: FDA-Public Use
  Company Number: JP-JNJFOC-20110809443

PATIENT
  Sex: Female

DRUGS (5)
  1. PREGABALIN [Concomitant]
     Route: 065
     Dates: start: 20101210, end: 20110712
  2. ROZEREM [Suspect]
     Indication: INSOMNIA
     Route: 048
     Dates: start: 20110418
  3. HALCION [Suspect]
     Indication: INSOMNIA
     Route: 048
  4. MORPHINE HCL ELIXIR [Suspect]
     Indication: PAIN
     Route: 048
     Dates: start: 20110218
  5. FENTANYL-100 [Suspect]
     Indication: PAIN
     Route: 062
     Dates: start: 20110715, end: 20110723

REACTIONS (2)
  - DECUBITUS ULCER [None]
  - OVERDOSE [None]
